FAERS Safety Report 5870452-9 (Version None)
Quarter: 2008Q3

REPORT INFORMATION
  Report Type: 
  Country: None (occurrence: None)
  Receive Date: 20080904
  Receipt Date: 20080125
  Transmission Date: 20090109
  Serious: Yes (Death, Hospitalization)
  Sender: FDA-Public Use
  Company Number: US-BRISTOL-MYERS SQUIBB COMPANY-14021828

PATIENT
  Age: 54 Year
  Sex: Female

DRUGS (5)
  1. DEFINITY [Suspect]
     Indication: STRESS ECHOCARDIOGRAM
     Route: 042
     Dates: start: 20071217
  2. TOPROL-XL [Concomitant]
  3. INSULIN [Concomitant]
  4. DOBUTAMINE HCL [Concomitant]
  5. ATROPINE [Concomitant]

REACTIONS (3)
  - CARDIAC ARREST [None]
  - DEATH [None]
  - VENTRICULAR FIBRILLATION [None]
